FAERS Safety Report 9822749 (Version 2)
Quarter: 2014Q1

REPORT INFORMATION
  Report Type: Report from Study
  Country: US (occurrence: US)
  Receive Date: 20140116
  Receipt Date: 20140129
  Transmission Date: 20141002
  Serious: Yes (Hospitalization)
  Sender: FDA-Public Use
  Company Number: US-EXELIXIS-XL18414003889

PATIENT
  Age: 61 Year
  Sex: Male
  Weight: 138.32 kg

DRUGS (18)
  1. XL184 [Suspect]
     Indication: PROSTATE CANCER
     Dosage: 60 MG, QD
     Route: 048
     Dates: start: 20131002, end: 20140105
  2. XL184 [Suspect]
     Dosage: 40 MG, QD
     Route: 048
     Dates: start: 20140116
  3. XL184 [Suspect]
     Indication: PROSTATE CANCER
     Dosage: 12 MG/M2, Q3WEEKS
     Route: 042
     Dates: start: 20131002
  4. XL184 [Suspect]
     Indication: PROSTATE CANCER
     Dosage: 5 MG, BID
     Route: 048
     Dates: start: 20131002, end: 20140106
  5. XL184 [Suspect]
     Dosage: 5 MG, BID
     Route: 048
     Dates: start: 20140116
  6. ZOFRAN [Concomitant]
  7. CALCIUM 600+D [Concomitant]
  8. TAXOTERE [Concomitant]
  9. IBUPROFEN [Concomitant]
  10. XGEVA [Concomitant]
  11. LUPRON DEPOT-4 MONTH [Concomitant]
  12. LOVENOX [Concomitant]
  13. ASA [Concomitant]
  14. SENNA-S [Concomitant]
  15. CLARITIN-D [Concomitant]
  16. ALEVE [Concomitant]
  17. OXYCODONE [Concomitant]
  18. TYLENOL [Concomitant]

REACTIONS (1)
  - Gastroenteritis viral [Recovered/Resolved]
